FAERS Safety Report 4467949-5 (Version None)
Quarter: 2004Q4

REPORT INFORMATION
  Report Type: 
  Country: None (occurrence: None)
  Receive Date: 20041001
  Receipt Date: 20040917
  Transmission Date: 20050328
  Serious: Yes (Hospitalization)
  Sender: FDA-Public Use
  Company Number: 25117

PATIENT
  Age: 81 Year
  Sex: Male

DRUGS (7)
  1. FLECAINIDE ACETATE [Suspect]
     Indication: ATRIAL FIBRILLATION
     Dosage: (2 IN 1 DAY(S))   ORAL
     Route: 048
     Dates: start: 20020201, end: 20040824
  2. LEVOBUNOLOL [Suspect]
     Indication: GLAUCOMA
     Dosage: 2 DOSAGE FORMS (1 DOSAGE FORMS, 2 IN 1 DAY (S))  INTRAOCULAR
     Route: 031
     Dates: start: 20020501, end: 20040824
  3. PERINDOPRIL [Concomitant]
  4. LANSOPRAZOLE [Concomitant]
  5. WARFARIN SODIUM [Concomitant]
  6. CANDESARTAN [Concomitant]
  7. LATANOPROST [Concomitant]

REACTIONS (3)
  - ATRIOVENTRICULAR BLOCK FIRST DEGREE [None]
  - BRADYCARDIA [None]
  - CIRCULATORY COLLAPSE [None]
